FAERS Safety Report 15696524 (Version 6)
Quarter: 2021Q1

REPORT INFORMATION
  Report Type: Spontaneous
  Country: US (occurrence: US)
  Receive Date: 20181206
  Receipt Date: 20210209
  Transmission Date: 20210419
  Serious: No
  Sender: FDA-Public Use
  Company Number: US-PFIZER INC-2018258659

PATIENT
  Age: 75 Year
  Sex: Male

DRUGS (1)
  1. SOMAVERT [Suspect]
     Active Substance: PEGVISOMANT
     Dosage: 15 MG, DAILY
     Route: 058

REACTIONS (3)
  - Dizziness [Unknown]
  - Ear disorder [Unknown]
  - Hypoacusis [Not Recovered/Not Resolved]
